FAERS Safety Report 15891881 (Version 4)
Quarter: 2020Q2

REPORT INFORMATION
  Report Type: Report from Study
  Country: US (occurrence: US)
  Receive Date: 20190130
  Receipt Date: 20200422
  Transmission Date: 20200713
  Serious: Yes (Death, Hospitalization)
  Sender: FDA-Public Use
  Company Number: US-TAKEDA-2019TUS003234

PATIENT
  Sex: Female

DRUGS (2)
  1. PONATINIB [Suspect]
     Active Substance: PONATINIB
     Indication: CHRONIC MYELOID LEUKAEMIA
     Dosage: 30 MILLIGRAM, QD
     Route: 048
     Dates: start: 20190108
  2. PONATINIB [Suspect]
     Active Substance: PONATINIB
     Dosage: 15 MILLIGRAM, QD
     Route: 048

REACTIONS (8)
  - Complication associated with device [Unknown]
  - Blood potassium decreased [Unknown]
  - Infusion site thrombosis [Unknown]
  - Full blood count decreased [Unknown]
  - Malaise [Unknown]
  - Fatigue [Unknown]
  - Death [Fatal]
  - Peripheral swelling [Unknown]
